FAERS Safety Report 10024158 (Version 1)
Quarter: 2014Q1

REPORT INFORMATION
  Report Type: Spontaneous
  Country: US (occurrence: None)
  Receive Date: 20140318
  Receipt Date: 20140318
  Transmission Date: 20141002
  Serious: Yes (Death, Hospitalization)
  Sender: FDA-Public Use
  Company Number: 2014-US-002753

PATIENT
  Age: 70 Year
  Sex: Male

DRUGS (1)
  1. XYREM [Suspect]
     Indication: INSOMNIA
     Route: 048
     Dates: start: 200608

REACTIONS (5)
  - Rib fracture [None]
  - Life support [None]
  - Fall [None]
  - Staring [None]
  - Off label use [None]
